FAERS Safety Report 7774381-5 (Version None)
Quarter: 2011Q3

REPORT INFORMATION
  Report Type: 
  Country: None (occurrence: None)
  Receive Date: 20110923
  Receipt Date: 20110919
  Transmission Date: 20111222
  Serious: Yes (Other)
  Sender: FDA-Public Use
  Company Number: FR-BRISTOL-MYERS SQUIBB COMPANY-16085540

PATIENT
  Age: 31 Year
  Sex: Female

DRUGS (1)
  1. ABILIFY [Suspect]
     Route: 048
     Dates: start: 20100601, end: 20101101

REACTIONS (1)
  - ABORTION SPONTANEOUS [None]
